FAERS Safety Report 22045272 (Version 1)
Quarter: 2023Q1

REPORT INFORMATION
  Report Type: Spontaneous
  Country: GR (occurrence: GR)
  Receive Date: 20230228
  Receipt Date: 20230228
  Transmission Date: 20230417
  Serious: Yes (Other)
  Sender: FDA-Public Use
  Company Number: GR-PFIZER INC-PV202300034189

PATIENT
  Age: 70 Year
  Sex: Male

DRUGS (6)
  1. INLYTA [Suspect]
     Active Substance: AXITINIB
     Indication: Renal cell carcinoma
     Dosage: RECEIVED 3 CYCLES OF TREATMENT
  2. INLYTA [Suspect]
     Active Substance: AXITINIB
     Indication: Metastases to bone
  3. INLYTA [Suspect]
     Active Substance: AXITINIB
     Indication: Metastases to lymph nodes
  4. PEMBROLIZUMAB [Suspect]
     Active Substance: PEMBROLIZUMAB
     Indication: Clear cell renal cell carcinoma
     Dosage: EVERY 21 DAYS, RECEIVED 3 CYCLES OF TREATMENT
  5. PEMBROLIZUMAB [Suspect]
     Active Substance: PEMBROLIZUMAB
     Indication: Metastases to bone
  6. PEMBROLIZUMAB [Suspect]
     Active Substance: PEMBROLIZUMAB
     Indication: Metastases to lymph nodes

REACTIONS (1)
  - Hepatitis [Recovered/Resolved]
